FAERS Safety Report 8592594-X (Version None)
Quarter: 2012Q3

REPORT INFORMATION
  Report Type: 
  Country: None (occurrence: None)
  Receive Date: 20120814
  Receipt Date: 20120807
  Transmission Date: 20120928
  Serious: Yes (Hospitalization, Other)
  Sender: FDA-Public Use
  Company Number: US-PFIZER INC-2012192450

PATIENT
  Age: 65 Year
  Sex: Female
  Weight: 76.644 kg

DRUGS (16)
  1. SPIRIVA [Concomitant]
     Dosage: UNK
  2. DETROL LA [Suspect]
     Dosage: UNK, 1X/DAY
     Route: 048
     Dates: start: 20111225, end: 20111225
  3. NORCO [Concomitant]
     Indication: PAIN
     Dosage: 10/325, UNK
  4. BACTRIM [Concomitant]
     Dosage: UNK, 1X/DAY
  5. FAMOTIDINE [Concomitant]
     Indication: GASTRIC DISORDER
     Dosage: 40 MG, UNK
  6. POTASSIUM CHLORIDE [Concomitant]
     Dosage: 20 MEQ, 1X/DAY
  7. DETROL LA [Suspect]
     Indication: URETHRAL STENOSIS
     Dosage: UNK, 1X/DAY
     Route: 048
     Dates: start: 20040101
  8. TOVIAZ [Suspect]
     Indication: URETHRAL STENOSIS
     Dosage: 8 MG, 1X/DAY
     Route: 048
     Dates: start: 20080101
  9. TOVIAZ [Suspect]
     Dosage: UNK, 1X/DAY
     Route: 048
     Dates: end: 20111225
  10. ZOLOFT [Concomitant]
     Dosage: 50 MG, 1X/DAY
  11. NITROSTAT [Concomitant]
     Dosage: UNK, AS NEEDED
  12. SYNTHROID [Concomitant]
     Dosage: 50 UG, 1X/DAY
  13. OGEN [Concomitant]
     Dosage: 0.75 MG, UNK
  14. MACROBID [Concomitant]
     Dosage: 100 MG, 1X/DAY
  15. ALBUTEROL [Concomitant]
     Dosage: UNK
  16. ATIVAN [Concomitant]
     Dosage: 0.5 MG, AS NEEDED

REACTIONS (5)
  - URINARY TRACT INFECTION [None]
  - OFF LABEL USE [None]
  - DRUG INEFFECTIVE [None]
  - CORONARY ARTERY OCCLUSION [None]
  - MYOCARDIAL INFARCTION [None]
